FAERS Safety Report 4340212-9 (Version None)
Quarter: 2004Q1

REPORT INFORMATION
  Report Type: 
  Country: None (occurrence: None)
  Receive Date: 20040329
  Receipt Date: 20040205
  Transmission Date: 20041129
  Serious: No
  Sender: FDA-Public Use
  Company Number: 04P-163-0249540-00

PATIENT
  Age: 61 Year
  Sex: Female

DRUGS (11)
  1. HUMIRA [Suspect]
     Indication: RHEUMATOID ARTHRITIS
     Dosage: 40 MG, 1 IN 2 WK, SUBCUTANEOUS
     Route: 058
     Dates: start: 20030801
  2. METHOTREXATE [Concomitant]
  3. ATENOLOL [Concomitant]
  4. LISINOPRIL [Concomitant]
  5. TRIAMTERENE [Concomitant]
  6. FOLIC ACID [Concomitant]
  7. TIMOLOL MALEATE [Concomitant]
  8. TRAVATAN [Concomitant]
  9. BRINZOLAMIDE [Concomitant]
  10. VOLTAREN [Concomitant]
  11. FORT-PREN [Concomitant]

REACTIONS (1)
  - DRUG EFFECT DECREASED [None]
